FAERS Safety Report 7833021-7 (Version None)
Quarter: 2011Q4

REPORT INFORMATION
  Report Type: 
  Country: None (occurrence: None)
  Receive Date: 20111024
  Receipt Date: 20111010
  Transmission Date: 20120403
  Serious: Yes (Hospitalization, Disabling, Other)
  Sender: FDA-Public Use
  Company Number: US-ELI_LILLY_AND_COMPANY-US201101002163

PATIENT
  Sex: Female

DRUGS (7)
  1. PREDNISONE [Concomitant]
  2. FORTEO [Suspect]
     Indication: OSTEOPOROSIS
     Dosage: 20 UG, DAILY (1/D)
     Route: 065
     Dates: start: 20101216
  3. LIPITOR [Concomitant]
  4. TOPROL-XL [Concomitant]
  5. ASPIRIN [Concomitant]
  6. FORTEO [Suspect]
     Dosage: 20 UG, DAILY (1/D)
     Route: 065
  7. CARDIZEM [Concomitant]

REACTIONS (14)
  - GAIT DISTURBANCE [None]
  - MUSCULAR WEAKNESS [None]
  - FALL [None]
  - LACERATION [None]
  - DRUG DOSE OMISSION [None]
  - CONTUSION [None]
  - JOINT INJURY [None]
  - DIZZINESS [None]
  - ARTHRALGIA [None]
  - VOLUME BLOOD DECREASED [None]
  - CONCUSSION [None]
  - IMPAIRED HEALING [None]
  - HEAD INJURY [None]
  - ARTHROPATHY [None]
